FAERS Safety Report 9637514 (Version 1)
Quarter: 2013Q4

REPORT INFORMATION
  Report Type: Spontaneous
  Country: US (occurrence: US)
  Receive Date: 20131022
  Receipt Date: 20131022
  Transmission Date: 20140711
  Serious: Yes (Other)
  Sender: FDA-Public Use
  Company Number: US-VERTEX PHARMACEUTICALS INC-2013-010521

PATIENT
  Age: 59 Year
  Sex: Female
  Weight: 85.26 kg

DRUGS (3)
  1. INCIVEK [Suspect]
     Indication: HEPATITIS C
     Dosage: 750 MG, TID
     Route: 048
     Dates: start: 201309
  2. RIBAVIRIN [Suspect]
     Indication: HEPATITIS C
     Dosage: 600 MG, BID
     Dates: start: 201309
  3. PEGASYS [Suspect]
     Indication: HEPATITIS C
     Dosage: 180 ?G/KG, UNK
     Route: 058
     Dates: start: 201309

REACTIONS (6)
  - Anaemia [Unknown]
  - Feeling abnormal [Not Recovered/Not Resolved]
  - Hypersomnia [Not Recovered/Not Resolved]
  - Confusional state [Not Recovered/Not Resolved]
  - Memory impairment [Not Recovered/Not Resolved]
  - Vomiting [Not Recovered/Not Resolved]
